FAERS Safety Report 17510194 (Version 6)
Quarter: 2020Q2

REPORT INFORMATION
  Report Type: Spontaneous
  Country: US (occurrence: US)
  Receive Date: 20200306
  Receipt Date: 20200427
  Transmission Date: 20200713
  Serious: No
  Sender: FDA-Public Use
  Company Number: US-PFIZER INC-2020100112

PATIENT
  Age: 81 Year
  Sex: Female

DRUGS (2)
  1. LYRICA [Suspect]
     Active Substance: PREGABALIN
     Dosage: 50 MG, 2X/DAY (Q HS)
     Route: 048
  2. LYRICA [Suspect]
     Active Substance: PREGABALIN
     Dosage: 1 DF, 1X/DAY (CUT DOWN TO ONE A DAY)

REACTIONS (5)
  - Intentional product use issue [Unknown]
  - Pain in extremity [Unknown]
  - Neuralgia [Unknown]
  - Paraesthesia [Unknown]
  - Feeling abnormal [Unknown]
